FAERS Safety Report 7394788-8 (Version None)
Quarter: 2011Q2

REPORT INFORMATION
  Report Type: 
  Country: None (occurrence: None)
  Receive Date: 20110405
  Receipt Date: 20110330
  Transmission Date: 20111010
  Serious: Yes (Other)
  Sender: FDA-Public Use
  Company Number: GB-ABBOTT-11P-167-0715665-00

PATIENT

DRUGS (2)
  1. TACROLIMUS [Interacting]
     Indication: PRODUCT USED FOR UNKNOWN INDICATION
  2. KALETRA [Suspect]
     Indication: ANTIRETROVIRAL THERAPY

REACTIONS (3)
  - CONVULSION [None]
  - ACUTE HEPATIC FAILURE [None]
  - DRUG INTERACTION [None]
